FAERS Safety Report 19056422 (Version 1)
Quarter: 2021Q1

REPORT INFORMATION
  Report Type: Report from Study
  Country: MA (occurrence: MA)
  Receive Date: 20210324
  Receipt Date: 20210324
  Transmission Date: 20210420
  Serious: Yes (Death)
  Sender: FDA-Public Use
  Company Number: NVSC2021MA036867

PATIENT
  Age: 77 Year
  Sex: Female

DRUGS (1)
  1. REVOLADE [Suspect]
     Active Substance: ELTROMBOPAG OLAMINE
     Indication: THROMBOCYTOSIS
     Dosage: 50 MG
     Route: 048
     Dates: start: 20210209

REACTIONS (9)
  - Illness [Unknown]
  - Nausea [Unknown]
  - Product use in unapproved indication [Unknown]
  - Back pain [Unknown]
  - Gastrointestinal pain [Unknown]
  - Decreased appetite [Unknown]
  - Death [Fatal]
  - Fatigue [Unknown]
  - Vomiting [Unknown]

NARRATIVE: CASE EVENT DATE: 20210209
